FAERS Safety Report 23051491 (Version 2)
Quarter: 2023Q4

REPORT INFORMATION
  Report Type: Spontaneous
  Country: NL (occurrence: None)
  Receive Date: 20231010
  Receipt Date: 20231020
  Transmission Date: 20240110
  Serious: Yes (Other)
  Sender: FDA-Public Use
  Company Number: 2023A228680

PATIENT
  Sex: Female

DRUGS (1)
  1. TAGRISSO [Suspect]
     Active Substance: OSIMERTINIB
     Indication: Lung carcinoma cell type unspecified stage IV
     Route: 048

REACTIONS (4)
  - Motor dysfunction [Not Recovered/Not Resolved]
  - Malignant neoplasm progression [Unknown]
  - Speech disorder [Not Recovered/Not Resolved]
  - Dry skin [Unknown]
